FAERS Safety Report 11204827 (Version 2)
Quarter: 2015Q3

REPORT INFORMATION
  Report Type: Spontaneous
  Country: US (occurrence: US)
  Receive Date: 20150622
  Receipt Date: 20150703
  Transmission Date: 20151125
  Serious: Yes (Hospitalization)
  Sender: FDA-Public Use
  Company Number: US-009507513-1506USA008133

PATIENT
  Sex: Female

DRUGS (1)
  1. ASMANEX [Suspect]
     Active Substance: MOMETASONE FUROATE
     Indication: ASTHMA
     Dosage: 200 MCG, DAILY
     Route: 055
     Dates: start: 20141205

REACTIONS (4)
  - Cough [Unknown]
  - Drug dose omission [Unknown]
  - Product quality issue [Unknown]
  - Adverse event [Unknown]
